FAERS Safety Report 5884517-9 (Version None)
Quarter: 2008Q3

REPORT INFORMATION
  Report Type: 
  Country: None (occurrence: None)
  Receive Date: 20080911
  Receipt Date: 20080519
  Transmission Date: 20090109
  Serious: Yes (Death, Other)
  Sender: FDA-Public Use
  Company Number: 2008EU001115

PATIENT
  Age: 53 Year
  Sex: Female

DRUGS (2)
  1. PROGRAF [Suspect]
     Indication: LIVER TRANSPLANT
  2. CORTICOSTEROIDS() [Suspect]
     Indication: LIVER TRANSPLANT
     Dosage: 1 MG,

REACTIONS (2)
  - HUMAN HERPESVIRUS 8 INFECTION [None]
  - KAPOSI'S SARCOMA [None]
